FAERS Safety Report 4840560-X (Version None)
Quarter: 2005Q4

REPORT INFORMATION
  Report Type: 
  Country: None (occurrence: None)
  Receive Date: 20051130
  Receipt Date: 20051017
  Transmission Date: 20060501
  Serious: No
  Sender: FDA-Public Use
  Company Number: US-BRISTOL-MYERS SQUIBB COMPANY-13146402

PATIENT
  Age: 79 Year
  Sex: Female

DRUGS (5)
  1. ERBITUX [Suspect]
     Indication: COLON CANCER
     Route: 042
  2. FLUOROURACIL [Concomitant]
     Indication: COLON CANCER
  3. LEUCOVORIN [Concomitant]
     Indication: COLON CANCER
  4. KYTRIL [Concomitant]
     Indication: PREMEDICATION
     Route: 042
  5. BENADRYL [Concomitant]
     Indication: PREMEDICATION
     Route: 042

REACTIONS (3)
  - PRURITUS [None]
  - RASH PUSTULAR [None]
  - RASH VESICULAR [None]
